FAERS Safety Report 8108375-7 (Version None)
Quarter: 2012Q1

REPORT INFORMATION
  Report Type: 
  Country: None (occurrence: None)
  Receive Date: 20120202
  Receipt Date: 20120111
  Transmission Date: 20120608
  Serious: No
  Sender: FDA-Public Use
  Company Number: US-AMGEN-USASP2012002155

PATIENT
  Age: 34 Year
  Sex: Female

DRUGS (1)
  1. ENBREL [Suspect]
     Indication: RHEUMATOID ARTHRITIS
     Dosage: 25 MG, 2 TIMES/WK
     Dates: start: 20080707

REACTIONS (6)
  - MUSCLE SPASMS [None]
  - VULVOVAGINAL DRYNESS [None]
  - NECK PAIN [None]
  - VULVOVAGINAL DISCOMFORT [None]
  - JOINT RANGE OF MOTION DECREASED [None]
  - DRY EYE [None]
